FAERS Safety Report 19114292 (Version 1)
Quarter: 2021Q2

REPORT INFORMATION
  Report Type: Spontaneous
  Country: CA (occurrence: CA)
  Receive Date: 20210408
  Receipt Date: 20210408
  Transmission Date: 20210717
  Serious: Yes (Life-Threatening, Other)
  Sender: FDA-Public Use
  Company Number: CA-JAZZ-2021-CA-006133

PATIENT
  Age: 3 Year
  Sex: Female
  Weight: 18 kg

DRUGS (16)
  1. ASPARAGINASE [Suspect]
     Active Substance: ASPARAGINASE
     Dosage: 1260 UNITS, 1 EVERY 1 HOURS
     Route: 042
  2. CYTARABINE. [Suspect]
     Active Substance: CYTARABINE
     Indication: ACUTE LYMPHOCYTIC LEUKAEMIA
     Dosage: 40 MILLIGRAM, ONCE
     Route: 037
  3. ACETAMINOPHEN. [Concomitant]
     Active Substance: ACETAMINOPHEN
     Indication: PRODUCT USED FOR UNKNOWN INDICATION
  4. ASPARAGINASE [Suspect]
     Active Substance: ASPARAGINASE
     Indication: ACUTE LYMPHOCYTIC LEUKAEMIA
     Dosage: 1260 UNITS, ONCE
     Route: 042
  5. METHOTREXATE. [Suspect]
     Active Substance: METHOTREXATE
     Dosage: 12 MILLIGRAM, ONCE
     Route: 037
  6. POLYETHYLENE GLYCOL [Concomitant]
     Active Substance: POLYETHYLENE GLYCOLS
     Indication: PRODUCT USED FOR UNKNOWN INDICATION
  7. HYDROCORTISONE. [Suspect]
     Active Substance: HYDROCORTISONE
     Indication: ACUTE LYMPHOCYTIC LEUKAEMIA
     Dosage: 150 MILLIGRAM, ONCE
     Route: 037
  8. GABAPENTIN. [Concomitant]
     Active Substance: GABAPENTIN
     Indication: PRODUCT USED FOR UNKNOWN INDICATION
  9. ONDANSETRON [Concomitant]
     Active Substance: ONDANSETRON
     Indication: PRODUCT USED FOR UNKNOWN INDICATION
  10. VALACYCLOVIR [Concomitant]
     Active Substance: VALACYCLOVIR HYDROCHLORIDE
     Indication: PRODUCT USED FOR UNKNOWN INDICATION
  11. MERCAPTOPURINE. [Suspect]
     Active Substance: MERCAPTOPURINE
     Indication: ACUTE LYMPHOCYTIC LEUKAEMIA
     Dosage: 30 MILLIGRAM, 1 EVERY 1 DAYS
     Route: 048
  12. NYSTATIN. [Concomitant]
     Active Substance: NYSTATIN
     Indication: PRODUCT USED FOR UNKNOWN INDICATION
  13. CEFTAZIDIME. [Concomitant]
     Active Substance: CEFTAZIDIME
     Indication: PRODUCT USED FOR UNKNOWN INDICATION
  14. FISH OIL [Concomitant]
     Active Substance: FISH OIL
     Indication: PRODUCT USED FOR UNKNOWN INDICATION
  15. METHOTREXATE. [Suspect]
     Active Substance: METHOTREXATE
     Indication: ACUTE LYMPHOCYTIC LEUKAEMIA
     Dosage: 21 MILLIGRAM, ONCE
     Route: 030
  16. VINCRISTINE SULFATE. [Suspect]
     Active Substance: VINCRISTINE SULFATE
     Indication: ACUTE LYMPHOCYTIC LEUKAEMIA
     Dosage: 1.4 MILLIGRAM
     Route: 042

REACTIONS (3)
  - Aplastic anaemia [Recovered/Resolved]
  - Chills [Recovered/Resolved]
  - Neutropenia [Recovered/Resolved]
